FAERS Safety Report 20608524 (Version 2)
Quarter: 2022Q1

REPORT INFORMATION
  Report Type: Spontaneous
  Country: JP (occurrence: JP)
  Receive Date: 20220317
  Receipt Date: 20220323
  Transmission Date: 20220424
  Serious: Yes (Other)
  Sender: FDA-Public Use
  Company Number: JP-UCBJ-CD202201982UCBPHAPROD

PATIENT
  Age: 81 Year
  Sex: Female

DRUGS (8)
  1. VIMPAT [Suspect]
     Active Substance: LACOSAMIDE
     Indication: Epilepsy
     Dosage: 100 MG DAILY
     Route: 048
  2. LEVETIRACETAM [Suspect]
     Active Substance: LEVETIRACETAM
     Indication: Epilepsy
     Dosage: 1000 MG DAILY
     Route: 048
  3. LEVETIRACETAM [Suspect]
     Active Substance: LEVETIRACETAM
     Indication: Off label use
  4. EDOXABAN TOSYLATE [Concomitant]
     Active Substance: EDOXABAN TOSYLATE
     Indication: Atrial fibrillation
     Dosage: UNK
     Route: 048
  5. DIGITALIS [Concomitant]
     Active Substance: DIGITALIS
     Indication: Product used for unknown indication
     Dosage: UNK
  6. VERAPAMIL HYDROCHLORIDE [Concomitant]
     Active Substance: VERAPAMIL HYDROCHLORIDE
     Indication: Product used for unknown indication
     Dosage: UNK
  7. DIAZEPAM [Concomitant]
     Active Substance: DIAZEPAM
     Indication: Product used for unknown indication
     Dosage: UNK
  8. FOSPHENYTOIN SODIUM HEPTAHYDRATE [Concomitant]
     Active Substance: FOSPHENYTOIN SODIUM HEPTAHYDRATE
     Indication: Product used for unknown indication
     Dosage: UNK

REACTIONS (8)
  - Cardiac arrest [Recovering/Resolving]
  - Bradycardia [Recovered/Resolved]
  - Hemiplegia [Unknown]
  - Eye movement disorder [Unknown]
  - Speech disorder [Unknown]
  - Muscle spasms [Unknown]
  - Drug ineffective [Unknown]
  - Off label use [Unknown]
